FAERS Safety Report 8842108 (Version 1)
Quarter: 2012Q4

REPORT INFORMATION
  Report Type: Report from Study
  Country: US (occurrence: US)
  Receive Date: 20121016
  Receipt Date: 20121016
  Transmission Date: 20130627
  Serious: Yes (Hospitalization, Other)
  Sender: FDA-Public Use
  Company Number: PHHO2010US17218

PATIENT
  Age: 51 Year
  Sex: Female
  Weight: 128 kg

DRUGS (18)
  1. AFINITOR [Suspect]
     Indication: BREAST CANCER METASTATIC
     Dosage: 10 mg, QD
     Route: 048
     Dates: start: 20100729
  2. AVASTIN [Suspect]
     Indication: BREAST CANCER METASTATIC
     Dosage: 1285 mg, UNK
     Route: 042
     Dates: start: 20100729, end: 20100908
  3. PACLITAXEL [Suspect]
     Indication: BREAST CANCER METASTATIC
     Dosage: 198 mg, (on days 1, 8 + 15)
     Route: 042
     Dates: start: 20100729, end: 20101020
  4. COREG [Concomitant]
  5. LISINOPRIL [Concomitant]
  6. ZOLOFT (SERTRALINE HYDROCHLORIDE) [Concomitant]
  7. COMPAZINE [Concomitant]
  8. ARANESP [Concomitant]
  9. PERCOCET [Concomitant]
  10. MEGACE [Concomitant]
  11. SOMA [Concomitant]
  12. DECADRON [Concomitant]
  13. NAPROSYN [Concomitant]
  14. LORTAB [Concomitant]
  15. TYLENOL [Concomitant]
  16. INFED [Concomitant]
  17. XANAX [Concomitant]
  18. VALIUM [Concomitant]

REACTIONS (6)
  - Breast infection [Not Recovered/Not Resolved]
  - Wound dehiscence [Unknown]
  - Renal failure acute [Recovered/Resolved]
  - Dehydration [Recovered/Resolved]
  - Clostridium difficile infection [Recovered/Resolved]
  - Lung disorder [Unknown]
